FAERS Safety Report 14073849 (Version 1)
Quarter: 2017Q4

REPORT INFORMATION
  Report Type: Spontaneous
  Country: CN (occurrence: CN)
  Receive Date: 20171011
  Receipt Date: 20171011
  Transmission Date: 20180321
  Serious: Yes (Other)
  Sender: FDA-Public Use
  Company Number: CN-PFIZER INC-2017436701

PATIENT
  Age: 48 Year
  Sex: Male
  Weight: 57 kg

DRUGS (1)
  1. CELECOXIB. [Suspect]
     Active Substance: CELECOXIB
     Indication: PAIN
     Dosage: 1 DF, 1X/DAY
     Route: 048
     Dates: start: 20170811

REACTIONS (2)
  - Herpes zoster [Recovering/Resolving]
  - Dermatitis herpetiformis [Recovering/Resolving]

NARRATIVE: CASE EVENT DATE: 20170811
